FAERS Safety Report 9224930 (Version 1)
Quarter: 2013Q2

REPORT INFORMATION
  Report Type: Spontaneous
  Country: US (occurrence: US)
  Receive Date: 20130411
  Receipt Date: 20130411
  Transmission Date: 20140414
  Serious: Yes (Other)
  Sender: FDA-Public Use
  Company Number: US-SANOFI-AVENTIS-2013SA036884

PATIENT
  Age: 65 Year
  Sex: Female

DRUGS (1)
  1. AUBAGIO [Suspect]
     Indication: MULTIPLE SCLEROSIS
     Route: 048
     Dates: start: 20130312, end: 20130324

REACTIONS (4)
  - Paralysis [Recovered/Resolved]
  - Gait disturbance [Recovered/Resolved]
  - Cerebrovascular accident [Recovered/Resolved]
  - Multiple sclerosis relapse [Recovered/Resolved]
